FAERS Safety Report 8436511-1 (Version None)
Quarter: 2012Q2

REPORT INFORMATION
  Report Type: 
  Country: None (occurrence: None)
  Receive Date: 20120614
  Receipt Date: 20120607
  Transmission Date: 20120825
  Serious: Yes (Other)
  Sender: FDA-Public Use
  Company Number: CA-GLAXOSMITHKLINE-A0980421A

PATIENT
  Age: 51 Year
  Sex: Female

DRUGS (4)
  1. PAXIL [Suspect]
     Indication: MAJOR DEPRESSION
     Dosage: 30MG TWICE PER DAY
     Route: 065
     Dates: start: 20000101
  2. XANAX [Concomitant]
     Dosage: 6MG PER DAY
     Route: 065
  3. SLEEPING PILLS [Concomitant]
     Dosage: 2TAB PER DAY
     Route: 065
  4. WELLBUTRIN [Concomitant]
     Route: 065

REACTIONS (5)
  - DIZZINESS [None]
  - LOSS OF CONSCIOUSNESS [None]
  - LOSS OF LIBIDO [None]
  - TREMOR [None]
  - VOMITING [None]
